FAERS Safety Report 12308349 (Version 2)
Quarter: 2016Q2

REPORT INFORMATION
  Report Type: Spontaneous
  Country: US (occurrence: US)
  Receive Date: 20160426
  Receipt Date: 20160510
  Transmission Date: 20160815
  Serious: Yes (Hospitalization, Other)
  Sender: FDA-Public Use
  Company Number: US-009507513-1604USA014027

PATIENT
  Age: 40 Year
  Sex: Female
  Weight: 117 kg

DRUGS (9)
  1. TIKOSYN [Suspect]
     Active Substance: DOFETILIDE
     Indication: ATRIAL FIBRILLATION
     Dosage: 500 MICROGRAM, BID
     Route: 048
     Dates: start: 20160411
  2. ALDACTONE [Concomitant]
     Active Substance: SPIRONOLACTONE
     Indication: WEIGHT INCREASED
     Dosage: 25 MG, PRN
     Route: 048
  3. ASPIRIN. [Concomitant]
     Active Substance: ASPIRIN
     Indication: ANTICOAGULANT THERAPY
     Dosage: 81 MG, QD
     Route: 048
  4. VITAMINS (UNSPECIFIED) [Concomitant]
     Active Substance: VITAMINS
     Indication: ROUTINE HEALTH MAINTENANCE
     Dosage: 1 TABLET DAILY
     Route: 048
  5. COREG [Suspect]
     Active Substance: CARVEDILOL
     Indication: CARDIAC FAILURE CONGESTIVE
     Dosage: 25 MG, BID
     Route: 048
  6. COZAAR [Suspect]
     Active Substance: LOSARTAN POTASSIUM
     Indication: CARDIAC FAILURE CONGESTIVE
     Dosage: 25 MG, QD
     Route: 048
  7. TIKOSYN [Suspect]
     Active Substance: DOFETILIDE
     Indication: ATRIAL TACHYCARDIA
     Dosage: 500 MICROGRAM, BID
     Route: 048
     Dates: start: 20150905, end: 20160301
  8. ALPRAZOLAM. [Concomitant]
     Active Substance: ALPRAZOLAM
     Indication: ANXIETY
     Dosage: 1 MG, TID
     Route: 048
  9. COUMADIN [Suspect]
     Active Substance: WARFARIN SODIUM
     Indication: ANTICOAGULANT THERAPY
     Dosage: 10 MG ON MONDAYS, WEDNESDAYS, FRIDAYS + SATURDAYS AND 12 MG ON TUESDAYS, THURSDAYS AND SUNDAYS

REACTIONS (3)
  - Cardiac failure congestive [Unknown]
  - International normalised ratio increased [Unknown]
  - Atrial tachycardia [Recovered/Resolved]

NARRATIVE: CASE EVENT DATE: 201512
